FAERS Safety Report 20675376 (Version 1)
Quarter: 2022Q2

REPORT INFORMATION
  Report Type: Spontaneous
  Country: CN (occurrence: CN)
  Receive Date: 20220405
  Receipt Date: 20220405
  Transmission Date: 20220720
  Serious: Yes (Hospitalization)
  Sender: FDA-Public Use
  Company Number: CN-BAXTER-2022BAX007158

PATIENT
  Age: 3 Year
  Sex: Male
  Weight: 17.5 kg

DRUGS (20)
  1. CYCLOPHOSPHAMIDE [Suspect]
     Active Substance: CYCLOPHOSPHAMIDE
     Indication: Acute lymphocytic leukaemia
     Dosage: CYCLOPHOSPHAMIDE FOR INJECTION 600 MG + 0.9% SODIUM CHLORIDE INJECTION 250 ML
     Route: 041
     Dates: start: 20220217, end: 20220217
  2. CYCLOPHOSPHAMIDE [Suspect]
     Active Substance: CYCLOPHOSPHAMIDE
     Dosage: DOSE REINTRODUCED FOR CYCLOPHOSPHAMIDE FOR INJECTION + 0.9% SODIUM CHLORIDE INJECTION
     Route: 041
  3. SODIUM CHLORIDE [Suspect]
     Active Substance: SODIUM CHLORIDE
     Indication: Medication dilution
     Dosage: CYCLOPHOSPHAMIDE FOR INJECTION 600 MG + 0.9% SODIUM CHLORIDE INJECTION 250 ML
     Route: 041
     Dates: start: 20220217, end: 20220217
  4. SODIUM CHLORIDE [Suspect]
     Active Substance: SODIUM CHLORIDE
     Dosage: VINCRISTINE SULFATE FOR INJECTION 0.9 MG + 0.9% SODIUM CHLORIDE INJECTION 50 ML
     Route: 041
     Dates: start: 20220204, end: 20220204
  5. SODIUM CHLORIDE [Suspect]
     Active Substance: SODIUM CHLORIDE
     Dosage: PEGASPARNASE INJECTION 1240 IU + SODIUM CHLORIDE INJECTION 18 MG
     Route: 030
     Dates: start: 20220204, end: 20220204
  6. SODIUM CHLORIDE [Suspect]
     Active Substance: SODIUM CHLORIDE
     Dosage: DOSE REINTRODUCED FOR CYCLOPHOSPHAMIDE FOR INJECTION + 0.9% SODIUM CHLORIDE INJECTION
     Route: 041
  7. SODIUM CHLORIDE [Suspect]
     Active Substance: SODIUM CHLORIDE
     Dosage: DOSE REINTRODUCED FOR VINCRISTINE SULFATE FOR INJECTION + 0.9% SODIUM CHLORIDE INJECTION
     Route: 041
  8. SODIUM CHLORIDE [Suspect]
     Active Substance: SODIUM CHLORIDE
     Dosage: DOSE REINTRODUCED FOR PEGASPARNASE INJECTION+ SODIUM CHLORIDE INJECTION
     Route: 030
  9. DEXTROSE [Suspect]
     Active Substance: DEXTROSE
     Indication: Medication dilution
     Dosage: CYTARABINE HYDROCHLORIDE FOR INJECTION 30 MG +  GLUCOSE INJECTION 50 ML
     Route: 041
     Dates: start: 20220217, end: 20220224
  10. DEXTROSE [Suspect]
     Active Substance: DEXTROSE
     Dosage: DOSE REINTRODUCED FOR CYTARABINE HYDROCHLORIDE FOR INJECTION+  GLUCOSE INJECTION
     Route: 041
  11. VINCRISTINE SULFATE [Suspect]
     Active Substance: VINCRISTINE SULFATE
     Indication: Acute lymphocytic leukaemia
     Dosage: VINCRISTINE SULFATE FOR INJECTION 0.9 MG + 0.9% SODIUM CHLORIDE INJECTION 50 ML
     Route: 041
     Dates: start: 20220204, end: 20220204
  12. VINCRISTINE SULFATE [Suspect]
     Active Substance: VINCRISTINE SULFATE
     Dosage: DOSE REINTRODUCED FOR VINCRISTINE SULFATE FOR INJECTION + 0.9% SODIUM CHLORIDE INJECTION
     Route: 041
  13. PEGASPARGASE [Suspect]
     Active Substance: PEGASPARGASE
     Indication: Acute lymphocytic leukaemia
     Dosage: PEGASPARNASE INJECTION 1240 IU + SODIUM CHLORIDE INJECTION 18 MG
     Route: 030
     Dates: start: 20220204, end: 20220204
  14. PEGASPARGASE [Suspect]
     Active Substance: PEGASPARGASE
     Dosage: DOSE REINTRODUCED FOR PEGASPARNASE INJECTION + SODIUM CHLORIDE INJECTION
     Route: 030
  15. METHOTREXATE [Suspect]
     Active Substance: METHOTREXATE
     Indication: Acute lymphocytic leukaemia
     Route: 037
     Dates: start: 20220211, end: 20220211
  16. METHOTREXATE [Suspect]
     Active Substance: METHOTREXATE
     Dosage: DOSE REINTRODUCED
     Route: 037
  17. CYTARABINE HYDROCHLORIDE [Suspect]
     Active Substance: CYTARABINE HYDROCHLORIDE
     Indication: Acute lymphocytic leukaemia
     Dosage: METHOTREXATE FOR INJECTION 5 MG + CYTARABINE HYDROCHLORIDE FOR INJECTION 35 MG INTRATHECAL
     Route: 037
     Dates: start: 20220211, end: 20220211
  18. CYTARABINE HYDROCHLORIDE [Suspect]
     Active Substance: CYTARABINE HYDROCHLORIDE
     Dosage: CYTARABINE HYDROCHLORIDE FOR INJECTION 30 MG +  GLUCOSE INJECTION 50 ML
     Route: 041
     Dates: start: 20220217, end: 20220224
  19. CYTARABINE HYDROCHLORIDE [Suspect]
     Active Substance: CYTARABINE HYDROCHLORIDE
     Dosage: DOSE REINTRODUCED
     Route: 037
  20. CYTARABINE HYDROCHLORIDE [Suspect]
     Active Substance: CYTARABINE HYDROCHLORIDE
     Dosage: DOSE REINTRODUCED FOR CYTARABINE HYDROCHLORIDE FOR INJECTION+  GLUCOSE INJECTION
     Route: 041

REACTIONS (2)
  - Myelosuppression [Recovering/Resolving]
  - Platelet count decreased [Recovering/Resolving]

NARRATIVE: CASE EVENT DATE: 20220301
